FAERS Safety Report 8065777-5 (Version None)
Quarter: 2011Q4

REPORT INFORMATION
  Report Type: 
  Country: None (occurrence: None)
  Receive Date: 20111221
  Receipt Date: 20110729
  Transmission Date: 20120403
  Serious: Yes (Death)
  Sender: FDA-Public Use
  Company Number: PHHY2010US87619

PATIENT
  Age: 85 Year
  Sex: Female
  Weight: 36 kg

DRUGS (1)
  1. EXJADE [Suspect]
     Dosage: 875 MG, DAILY, ORAL
     Route: 048
     Dates: start: 20100513

REACTIONS (2)
  - NEOPLASM MALIGNANT [None]
  - NEOPLASM PROGRESSION [None]
